FAERS Safety Report 9500346 (Version 1)
Quarter: 2013Q1

REPORT INFORMATION
  Report Type: Spontaneous
  Country: US (occurrence: None)
  Receive Date: 20130107
  Receipt Date: 20130107
  Transmission Date: 20140127
  Serious: No
  Sender: FDA-Public Use
  Company Number: PHEH2012US017924

PATIENT
  Age: 54 Year
  Sex: Female

DRUGS (11)
  1. GILENYA (FTY) CAPSULE, 0.5MG [Suspect]
     Indication: MULTIPLE SCLEROSIS
     Route: 048
     Dates: start: 20110208
  2. TOPAMAX (TOPIRAMATE) TABLET 200MG [Concomitant]
  3. ACIPHEX (RABEPRAZOLE SODIUM) [Concomitant]
  4. DIOVAN HCT (HYDROCHLOROTHIAZIDE, VALSARTAN) [Concomitant]
  5. TYLENOL WITH CODEINE (CODEINE PHOSPHATE, PARACETAMOL) [Concomitant]
  6. FLEXERIL (CYCLOBENZAPRINE HYDROCHLORIDE) [Concomitant]
  7. SYMBICORT [Concomitant]
  8. VENTOLIN (SALBUTAMOL) AEROSOL [Concomitant]
  9. NASONEX (MOMETASONE FUROATE) [Concomitant]
  10. NUVIGIL (ARMODAFINIL) TABLET, 250 MG [Concomitant]
  11. AMANTADINE HYDROCHLORIDE (AMANTADINE HYDROCHLORIDE) CAPSULE, 100MG [Concomitant]

REACTIONS (18)
  - Micturition urgency [None]
  - Musculoskeletal disorder [None]
  - Gait disturbance [None]
  - Coordination abnormal [None]
  - Fall [None]
  - Back pain [None]
  - Rhinorrhoea [None]
  - Multiple sclerosis relapse [None]
  - Stress [None]
  - Extensor plantar response [None]
  - Vibration test abnormal [None]
  - Fatigue [None]
  - Depression [None]
  - Sinusitis [None]
  - Nasopharyngitis [None]
  - Cerebellar syndrome [None]
  - Hypoaesthesia [None]
  - Dysarthria [None]
